FAERS Safety Report 23388138 (Version 3)
Quarter: 2024Q3

REPORT INFORMATION
  Report Type: Report from Study
  Country: CA (occurrence: CA)
  Receive Date: 20240110
  Receipt Date: 20240909
  Transmission Date: 20241017
  Serious: Yes (Hospitalization)
  Sender: VIFOR
  Company Number: CA-Vifor (International) Inc.-VIT-2024-00160

PATIENT
  Age: 87 Year
  Sex: Male

DRUGS (1)
  1. VELTASSA [Suspect]
     Active Substance: PATIROMER
     Indication: Hyperkalaemia
     Dosage: EVERY MONDAY AND THURSDAY
     Route: 048
     Dates: start: 20230911

REACTIONS (3)
  - Urinary tract infection [Unknown]
  - Osteomyelitis [Unknown]
  - Off label use [Unknown]

NARRATIVE: CASE EVENT DATE: 20230911
